FAERS Safety Report 7738002-X (Version None)
Quarter: 2011Q3

REPORT INFORMATION
  Report Type: 
  Country: None (occurrence: None)
  Receive Date: 20110906
  Receipt Date: 20110825
  Transmission Date: 20111222
  Serious: Yes (Hospitalization)
  Sender: FDA-Public Use
  Company Number: US-1187741

PATIENT
  Age: 52 Year
  Sex: Male

DRUGS (5)
  1. PILOCARPINE HCL [Suspect]
  2. TRACLEER [Suspect]
     Indication: PULMONARY ARTERIAL HYPERTENSION
     Dosage: ORAL
     Route: 048
     Dates: start: 20101007
  3. CALCIUM CHANNEL BLOCKERS [Concomitant]
  4. COUMADIN [Concomitant]
  5. REVATIO [Concomitant]

REACTIONS (4)
  - HYPERHIDROSIS [None]
  - CHILLS [None]
  - DEHYDRATION [None]
  - NAUSEA [None]
